FAERS Safety Report 4914253-4 (Version None)
Quarter: 2006Q1

REPORT INFORMATION
  Report Type: 
  Country: None (occurrence: None)
  Receive Date: 20060213
  Receipt Date: 20060201
  Transmission Date: 20060701
  Serious: Yes (Life-Threatening, Hospitalization, Disabling)
  Sender: FDA-Public Use
  Company Number: 2006-02-0109

PATIENT
  Age: 43 Year
  Sex: Female
  Weight: 50 kg

DRUGS (4)
  1. VIRAFERONPEG [Suspect]
     Indication: HEPATITIS C
     Dosage: 1.5 UG/KG QW SUBCUTANEOUS
     Route: 058
     Dates: start: 20040628, end: 20040825
  2. REBETOL [Suspect]
     Indication: HEPATITIS C
     Dosage: 800 MG QD ORAL
     Route: 048
     Dates: start: 20040628, end: 20040825
  3. DEROXAT [Concomitant]
  4. IXPRIM (PARACETAMOL/TRAMADOL HYDROCHLORIDE) [Concomitant]

REACTIONS (5)
  - ARTHRALGIA [None]
  - AUTOIMMUNE THROMBOCYTOPENIA [None]
  - MENINGITIS TUBERCULOUS [None]
  - THROMBOTIC THROMBOCYTOPENIC PURPURA [None]
  - TUBERCULOSIS OF CENTRAL NERVOUS SYSTEM [None]
